FAERS Safety Report 21264343 (Version 1)
Quarter: 2022Q3

REPORT INFORMATION
  Report Type: Spontaneous
  Country: CA (occurrence: CA)
  Receive Date: 20220829
  Receipt Date: 20220829
  Transmission Date: 20221027
  Serious: Yes (Hospitalization)
  Sender: FDA-Public Use
  Company Number: CA-BAYER-2022A118975

PATIENT
  Age: 82 Year
  Sex: Male
  Weight: 96 kg

DRUGS (20)
  1. XARELTO [Suspect]
     Active Substance: RIVAROXABAN
     Indication: Atrial fibrillation
     Dosage: 20 MG, QD
     Route: 048
  2. ASPIRIN [Suspect]
     Active Substance: ASPIRIN
     Indication: Product used for unknown indication
     Dosage: 80 MG, QD
     Route: 048
  3. TAMSULOSIN [Concomitant]
     Active Substance: TAMSULOSIN
  4. ATORVASTATIN [Concomitant]
     Active Substance: ATORVASTATIN
     Dosage: UNK
     Route: 065
  5. NITROGLYCERIN [Concomitant]
     Active Substance: NITROGLYCERIN
     Dosage: UNK
  6. METOPROLOL [Concomitant]
     Active Substance: METOPROLOL
     Route: 065
  7. ACETAMINOPHEN [Concomitant]
     Active Substance: ACETAMINOPHEN
  8. GABAPENTIN [Concomitant]
     Active Substance: GABAPENTIN
  9. CALCIUM CARBONATE [Concomitant]
     Active Substance: CALCIUM CARBONATE
  10. VITAMIN D NOS [Concomitant]
     Active Substance: VITAMIN D NOS
  11. MELATONIN [Concomitant]
     Active Substance: MELATONIN
  12. VITAMIN B12 [Concomitant]
     Active Substance: CYANOCOBALAMIN
  13. DUTASTERIDE [Concomitant]
     Active Substance: DUTASTERIDE
     Dosage: UNK
  14. TRANDOLAPRIL [Concomitant]
     Active Substance: TRANDOLAPRIL
  15. OXAZEPAM [Concomitant]
     Active Substance: OXAZEPAM
  16. INSPRA [Concomitant]
     Active Substance: EPLERENONE
     Route: 048
  17. PANTOPRAZOLE [Concomitant]
     Active Substance: PANTOPRAZOLE
  18. FERROUS SULFATE [Concomitant]
     Active Substance: FERROUS SULFATE
  19. HYDROMORPHONE [Concomitant]
     Active Substance: HYDROMORPHONE
  20. DULOXETINE HYDROCHLORIDE [Concomitant]
     Active Substance: DULOXETINE HYDROCHLORIDE

REACTIONS (4)
  - Orthostatic hypotension [Recovered/Resolved]
  - Chronic gastrointestinal bleeding [Recovered/Resolved]
  - Gastrointestinal angiodysplasia [Recovered/Resolved]
  - Anaemia [Recovered/Resolved]
